FAERS Safety Report 7819570-6 (Version None)
Quarter: 2011Q4

REPORT INFORMATION
  Report Type: 
  Country: None (occurrence: None)
  Receive Date: 20111018
  Receipt Date: 20111014
  Transmission Date: 20120403
  Serious: Yes (Hospitalization)
  Sender: FDA-Public Use
  Company Number: IT-SANOFI-AVENTIS-2011SA066332

PATIENT
  Age: 73 Year
  Sex: Male

DRUGS (5)
  1. ESOMEPRAZOLE SODIUM [Concomitant]
     Route: 048
  2. OLMESARTAN MEDOXOMIL [Suspect]
     Indication: HYPERTENSION
     Route: 048
     Dates: start: 20110401, end: 20110819
  3. LEVOTHYROXINE SODIUM [Concomitant]
     Route: 048
  4. MULTAQ [Suspect]
     Route: 048
     Dates: start: 20110627, end: 20110819
  5. ENOXAPARIN SODIUM [Concomitant]
     Dosage: DOSE:4000 ANTI-XA ACTIVITY INTERNATIONAL UNIT(S)
     Route: 058

REACTIONS (1)
  - RENAL FAILURE ACUTE [None]
